FAERS Safety Report 11871334 (Version 1)
Quarter: 2015Q4

REPORT INFORMATION
  Report Type: Spontaneous
  Country: US (occurrence: None)
  Receive Date: 20151224
  Receipt Date: 20151224
  Transmission Date: 20160305
  Serious: Yes (Hospitalization)
  Sender: FDA-Public Use
  Company Number: None

PATIENT
  Age: 86 Year
  Sex: Female

DRUGS (20)
  1. ASPIRIN. [Concomitant]
     Active Substance: ASPIRIN
  2. CLOPIDOGREL [Concomitant]
     Active Substance: CLOPIDOGREL BISULFATE
  3. PREDNISONE. [Concomitant]
     Active Substance: PREDNISONE
  4. ACETAMINOPHEN. [Concomitant]
     Active Substance: ACETAMINOPHEN
  5. ALUMINUM HYDROXIDE. [Concomitant]
     Active Substance: ALUMINUM HYDROXIDE
  6. BISACODYL. [Concomitant]
     Active Substance: BISACODYL
  7. LEVETIRACETAM. [Concomitant]
     Active Substance: LEVETIRACETAM
  8. CAPTOPRIL. [Concomitant]
     Active Substance: CAPTOPRIL
  9. LIDOCAINE. [Concomitant]
     Active Substance: LIDOCAINE
  10. CAPTOPRIL. [Suspect]
     Active Substance: CAPTOPRIL
     Route: 042
  11. METOPROLOL TARTRATE. [Concomitant]
     Active Substance: METOPROLOL TARTRATE
  12. HEPARIN [Concomitant]
     Active Substance: HEPARIN SODIUM
  13. MAGNESIUM HYDROXIDE. [Concomitant]
     Active Substance: MAGNESIUM HYDROXIDE
  14. NITROGLYCERIN. [Suspect]
     Active Substance: NITROGLYCERIN
     Indication: CORONARY ARTERY DISEASE
     Dosage: 150MCG/MIN  CONTINUOUS
     Route: 042
     Dates: start: 20151108, end: 20151108
  15. LEVOTHYROXINE. [Concomitant]
     Active Substance: LEVOTHYROXINE
  16. POLYETHYLENE GLYCOL 3350. [Concomitant]
     Active Substance: POLYETHYLENE GLYCOL 3350
  17. TEMAZEPAM. [Concomitant]
     Active Substance: TEMAZEPAM
  18. ATROVASTATIN [Concomitant]
     Active Substance: ATORVASTATIN CALCIUM
  19. RANITIDINE [Concomitant]
     Active Substance: RANITIDINE\RANITIDINE HYDROCHLORIDE
  20. SIMETHICONE (DIMETHICONE) [Concomitant]
     Active Substance: DIMETHICONE

REACTIONS (7)
  - Eye disorder [None]
  - Embolic stroke [None]
  - Blood pressure decreased [None]
  - Cognitive disorder [None]
  - Unresponsive to stimuli [None]
  - Disorientation [None]
  - Ischaemic stroke [None]

NARRATIVE: CASE EVENT DATE: 20151108
